FAERS Safety Report 7538001-7 (Version None)
Quarter: 2011Q2

REPORT INFORMATION
  Report Type: 
  Country: None (occurrence: None)
  Receive Date: 20110609
  Receipt Date: 20110606
  Transmission Date: 20111010
  Serious: Yes (Other)
  Sender: FDA-Public Use
  Company Number: AU-PFIZER INC-2011121486

PATIENT
  Age: 57 Year
  Sex: Male

DRUGS (3)
  1. NEXIUM [Concomitant]
  2. LIPITOR [Concomitant]
     Dosage: 40 MG, UNK
  3. ZOLOFT [Suspect]
     Indication: PANIC ATTACK
     Dosage: 250 MG DAILY
     Dates: start: 19940101

REACTIONS (6)
  - FALL [None]
  - COORDINATION ABNORMAL [None]
  - BALANCE DISORDER [None]
  - PATELLA FRACTURE [None]
  - PARAESTHESIA [None]
  - FEAR OF FALLING [None]
